FAERS Safety Report 8477956-3 (Version None)
Quarter: 2012Q2

REPORT INFORMATION
  Report Type: 
  Country: None (occurrence: None)
  Receive Date: 20120629
  Receipt Date: 20120625
  Transmission Date: 20120825
  Serious: Yes (Congenital Anomaly, Other)
  Sender: FDA-Public Use
  Company Number: US-PFIZER INC-2012153762

PATIENT
  Sex: Male

DRUGS (1)
  1. ZOLOFT [Suspect]
     Dosage: UNK
     Route: 064
     Dates: start: 19980101, end: 20080101

REACTIONS (2)
  - CLEFT LIP AND PALATE [None]
  - MATERNAL EXPOSURE TIMING UNSPECIFIED [None]
